FAERS Safety Report 9301370 (Version 1)
Quarter: 2013Q2

REPORT INFORMATION
  Report Type: Report from Study
  Country: FR (occurrence: FR)
  Receive Date: 20130521
  Receipt Date: 20130521
  Transmission Date: 20140414
  Serious: Yes (Hospitalization, Other)
  Sender: FDA-Public Use
  Company Number: FR-SHIRE-SPV1-2009-00649

PATIENT
  Age: 10 Year
  Sex: Male
  Weight: 32 kg

DRUGS (10)
  1. IDURSULFASE [Suspect]
     Indication: MUCOPOLYSACCHARIDOSIS II
     Dosage: 18 MG, 1X/WEEK
     Route: 041
     Dates: start: 20061228
  2. SERETIDE                           /01420901/ [Concomitant]
     Dosage: 2 DF, 2X/DAY:BID
     Dates: start: 20060918
  3. SALBUTAMOL [Concomitant]
     Dosage: 1 DF, 2X/DAY:BID
     Route: 048
     Dates: start: 20060918
  4. LAROXYL [Concomitant]
     Indication: NEURALGIA
     Dosage: 15 DF, 2X/DAY:BID
     Route: 048
     Dates: start: 20060918
  5. IBUPROFEN [Concomitant]
     Indication: PAIN
     Dosage: UNK, 1X/DAY:QD
     Route: 048
     Dates: start: 20060918
  6. CYAMEMAZINE [Concomitant]
     Indication: AGITATION
     Dosage: 15 DF, 1X/DAY:QD
     Route: 048
     Dates: start: 20060918
  7. CARBAMAZEPIN [Concomitant]
     Indication: NEURALGIA
     Dosage: 500 MG, 1X/DAY:QD
     Route: 048
     Dates: start: 20060918
  8. RISPERDAL [Concomitant]
     Dosage: 2 MG, 1X/DAY:QD
     Route: 048
     Dates: start: 20081205
  9. PARACETAMOL/CODEINEFOSFAAT [Concomitant]
     Dosage: 3 DF, 1X/DAY:QD
     Route: 048
     Dates: start: 20081205
  10. ATARAX                             /00058401/ [Concomitant]
     Indication: PREMEDICATION
     Dosage: 15 MG, 1X/WEEK
     Route: 065
     Dates: start: 20061228

REACTIONS (6)
  - Pneumonia [Recovered/Resolved]
  - Asthenia [Recovered/Resolved]
  - Pyrexia [Recovered/Resolved]
  - Dyspnoea [Recovered/Resolved]
  - Tachypnoea [Recovered/Resolved]
  - Nasopharyngitis [Recovered/Resolved]
